FAERS Safety Report 21400131 (Version 2)
Quarter: 2022Q4

REPORT INFORMATION
  Report Type: Spontaneous
  Country: TH (occurrence: TH)
  Receive Date: 20221002
  Receipt Date: 20221004
  Transmission Date: 20230113
  Serious: Yes (Other)
  Sender: FDA-Public Use
  Company Number: TH-NOVARTISPH-NVSC2022TH219282

PATIENT
  Age: 53 Year
  Sex: Female

DRUGS (3)
  1. ZYKADIA [Suspect]
     Active Substance: CERITINIB
     Indication: Non-small cell lung cancer
     Dosage: 750 MG, QD (FASTED)
     Route: 065
     Dates: start: 201709
  2. ZYKADIA [Suspect]
     Active Substance: CERITINIB
     Dosage: 450 MG, QD
     Route: 065
     Dates: start: 202003
  3. ZYKADIA [Suspect]
     Active Substance: CERITINIB
     Dosage: 300 MG, QD (FED)
     Route: 065

REACTIONS (3)
  - Metastases to central nervous system [Recovering/Resolving]
  - Disease recurrence [Recovering/Resolving]
  - Radiation necrosis [Unknown]

NARRATIVE: CASE EVENT DATE: 20220701
